FAERS Safety Report 25032794 (Version 3)
Quarter: 2025Q2

REPORT INFORMATION
  Report Type: Spontaneous
  Country: BR (occurrence: BR)
  Receive Date: 20250303
  Receipt Date: 20250627
  Transmission Date: 20250717
  Serious: Yes (Life-Threatening, Hospitalization, Other)
  Sender: NOVARTIS
  Company Number: BR-002147023-NVSC2025BR035276

PATIENT
  Sex: Female
  Weight: 137 kg

DRUGS (10)
  1. ELTROMBOPAG OLAMINE [Suspect]
     Active Substance: ELTROMBOPAG OLAMINE
     Indication: Immune thrombocytopenia
     Route: 065
     Dates: start: 2024
  2. ELTROMBOPAG OLAMINE [Suspect]
     Active Substance: ELTROMBOPAG OLAMINE
     Route: 065
  3. ELTROMBOPAG OLAMINE [Suspect]
     Active Substance: ELTROMBOPAG OLAMINE
     Dosage: 75 MG, QD
     Route: 048
     Dates: start: 20250228
  4. DESOGESTREL [Suspect]
     Active Substance: DESOGESTREL
     Indication: Product used for unknown indication
     Route: 065
  5. LOSARTAN [Concomitant]
     Active Substance: LOSARTAN
     Indication: Hypertension
     Dosage: 50 MG, BID (50 MG NIGHT AND DAY)
     Route: 065
  6. HYDROCHLOROTHIAZIDE [Concomitant]
     Active Substance: HYDROCHLOROTHIAZIDE
     Indication: Hypertension
     Dosage: 25 MG, QD
     Route: 065
  7. SIBUTRAMINE [Concomitant]
     Active Substance: SIBUTRAMINE
     Indication: Product used for unknown indication
     Route: 065
  8. TOPIRAMATE [Concomitant]
     Active Substance: TOPIRAMATE
     Indication: Product used for unknown indication
     Dosage: 50 MG, QD (AT NIGHT)
     Route: 065
  9. ORLISTAT [Concomitant]
     Active Substance: ORLISTAT
     Indication: Product used for unknown indication
     Dosage: 120 MG, BID
     Route: 065
  10. VITAMIN D [Concomitant]
     Active Substance: VITAMIN D NOS
     Indication: Product used for unknown indication
     Route: 065

REACTIONS (28)
  - Fear of death [Unknown]
  - Haemorrhage [Recovered/Resolved]
  - Platelet count decreased [Recovered/Resolved]
  - Vaginal haemorrhage [Unknown]
  - Thrombocytopenia [Unknown]
  - Drug dependence [Not Recovered/Not Resolved]
  - Depressed mood [Unknown]
  - Malaise [Recovered/Resolved]
  - Dengue fever [Unknown]
  - Crying [Unknown]
  - Depression [Unknown]
  - Product dose omission issue [Recovered/Resolved]
  - Product dose omission issue [Recovered/Resolved]
  - Product dose omission issue [Recovered/Resolved]
  - Hormone level abnormal [Unknown]
  - Arthralgia [Unknown]
  - Influenza [Unknown]
  - Immune system disorder [Unknown]
  - Pyrexia [Unknown]
  - Varicose vein [Unknown]
  - Haematoma [Unknown]
  - Petechiae [Unknown]
  - Stress [Unknown]
  - Abdominal discomfort [Unknown]
  - Pain [Unknown]
  - Platelet count decreased [Unknown]
  - Weight increased [Unknown]
  - Fatigue [Unknown]
